FAERS Safety Report 9768321 (Version 4)
Quarter: 2014Q1

REPORT INFORMATION
  Report Type: Spontaneous
  Country: IT (occurrence: IT)
  Receive Date: 20131217
  Receipt Date: 20140113
  Transmission Date: 20141002
  Serious: Yes (Life-Threatening)
  Sender: FDA-Public Use
  Company Number: PHHY2013IT145401

PATIENT
  Sex: Male

DRUGS (7)
  1. LORAZEPAM [Suspect]
     Indication: COGNITIVE DISORDER
     Dosage: 1 MG, QD
     Route: 048
     Dates: end: 20130920
  2. STILNOX [Suspect]
     Indication: COGNITIVE DISORDER
     Dosage: 10 MG, QD
     Route: 048
     Dates: end: 20130920
  3. PANTORC [Concomitant]
     Indication: PROPHYLAXIS AGAINST GASTROINTESTINAL ULCER
     Dosage: 20 MG
     Dates: end: 20130920
  4. SEROQUEL [Concomitant]
     Dosage: 50 MG
  5. HALDOL [Concomitant]
     Dosage: 10 GTT
  6. CARDIOASPIRIN [Concomitant]
     Indication: THROMBOSIS PROPHYLAXIS
     Dosage: 100 MG
  7. ANTIBIOTICS [Concomitant]

REACTIONS (2)
  - Subdural haematoma [Recovering/Resolving]
  - Fall [Recovering/Resolving]
